FAERS Safety Report 9785791 (Version 1)
Quarter: 2013Q4

REPORT INFORMATION
  Report Type: Spontaneous
  Country: PL (occurrence: None)
  Receive Date: 20131224
  Receipt Date: 20131224
  Transmission Date: 20140711
  Serious: Yes (Hospitalization)
  Sender: FDA-Public Use
  Company Number: IPC201312-000512

PATIENT
  Age: 31 Year
  Sex: Male

DRUGS (2)
  1. CHLOROQUINE PHOSPHATE [Suspect]
     Indication: SYSTEMIC LUPUS ERYTHEMATOSUS
  2. METHYLPREDNISOLONE (METHYLPREDNISOLONE) [Concomitant]

REACTIONS (18)
  - Bipolar disorder [None]
  - Major depression [None]
  - Mania [None]
  - Suicidal ideation [None]
  - Systemic lupus erythematosus [None]
  - Drug ineffective [None]
  - Psychomotor retardation [None]
  - Feelings of worthlessness [None]
  - Decreased interest [None]
  - Agitation [None]
  - Blood cholesterol increased [None]
  - Low density lipoprotein increased [None]
  - Psychomotor hyperactivity [None]
  - Elevated mood [None]
  - Logorrhoea [None]
  - Distractibility [None]
  - Platelet count decreased [None]
  - Hallucinations, mixed [None]
